FAERS Safety Report 22175918 (Version 2)
Quarter: 2023Q2

REPORT INFORMATION
  Report Type: Spontaneous
  Country: FR (occurrence: FR)
  Receive Date: 20230405
  Receipt Date: 20230615
  Transmission Date: 20230721
  Serious: Yes (Other)
  Sender: FDA-Public Use
  Company Number: FR-002147023-NVSC2023FR077051

PATIENT
  Age: 12 Year
  Sex: Male

DRUGS (1)
  1. ILARIS [Suspect]
     Active Substance: CANAKINUMAB
     Indication: Mevalonate kinase deficiency
     Dosage: 6 MG/KG
     Route: 065

REACTIONS (2)
  - Seizure [Unknown]
  - Prescribed overdose [Unknown]
